FAERS Safety Report 5401975-4 (Version None)
Quarter: 2007Q3

REPORT INFORMATION
  Report Type: 
  Country: None (occurrence: None)
  Receive Date: 20070727
  Receipt Date: 20070711
  Transmission Date: 20080115
  Serious: Yes (Death)
  Sender: FDA-Public Use
  Company Number: 2007JP003284

PATIENT
  Age: 44 Year
  Sex: Male

DRUGS (4)
  1. PROGRAF [Suspect]
     Indication: RENAL TRANSPLANT
  2. MYCOPHENOLATE MOFETIL [Concomitant]
  3. PREDNISOLONE [Concomitant]
  4. SIMULECT [Concomitant]

REACTIONS (8)
  - ANOREXIA [None]
  - CLEAR CELL CARCINOMA OF THE KIDNEY [None]
  - MALIGNANT NEOPLASM PROGRESSION [None]
  - METASTASES TO BONE [None]
  - POST PROCEDURAL COMPLICATION [None]
  - PYREXIA [None]
  - TUMOUR EMBOLISM [None]
  - URINARY ANASTOMOTIC LEAK [None]
